FAERS Safety Report 10779710 (Version 4)
Quarter: 2015Q2

REPORT INFORMATION
  Report Type: Report from Study
  Country: US (occurrence: US)
  Receive Date: 20150210
  Receipt Date: 20150615
  Transmission Date: 20150821
  Serious: Yes (Other)
  Sender: FDA-Public Use
  Company Number: US-SA-2015SA015893

PATIENT
  Age: 30 Year
  Sex: Male
  Weight: 68.04 kg

DRUGS (1)
  1. FABRAZYME [Suspect]
     Active Substance: AGALSIDASE BETA
     Indication: FABRY^S DISEASE
     Route: 042
     Dates: start: 20090916

REACTIONS (7)
  - Dizziness [Recovering/Resolving]
  - Impaired healing [Unknown]
  - Arthralgia [Recovering/Resolving]
  - Hip fracture [Recovering/Resolving]
  - Cerebrovascular accident [Recovering/Resolving]
  - Lower limb fracture [Unknown]
  - Fall [Unknown]

NARRATIVE: CASE EVENT DATE: 201311
